FAERS Safety Report 8588708 (Version 3)
Quarter: 2013Q1

REPORT INFORMATION
  Report Type: Spontaneous
  Country: US (occurrence: US)
  Receive Date: 20120531
  Receipt Date: 20130128
  Transmission Date: 20140127
  Serious: Yes (Hospitalization)
  Sender: FDA-Public Use
  Company Number: US-GLAXOSMITHKLINE-A0803990A

PATIENT
  Age: 64 Year
  Sex: Female

DRUGS (7)
  1. ALLI [Suspect]
     Indication: WEIGHT LOSS DIET
     Route: 048
     Dates: start: 200803, end: 201204
  2. LIPITOR [Suspect]
  3. EVISTA [Concomitant]
  4. BONIVA [Concomitant]
  5. TRILIPIX [Concomitant]
  6. OMEPRAZOLE [Concomitant]
  7. VITAMIN [Concomitant]

REACTIONS (22)
  - Diverticulitis [Recovered/Resolved]
  - Alanine aminotransferase increased [Unknown]
  - Aspartate aminotransferase increased [Unknown]
  - Hepatic enzyme increased [Unknown]
  - Treatment noncompliance [Unknown]
  - Rectal discharge [Unknown]
  - Abdominal pain [Unknown]
  - Abdominal pain upper [Unknown]
  - Defaecation urgency [Unknown]
  - Constipation [Unknown]
  - Diverticulum [Unknown]
  - Condition aggravated [Unknown]
  - Pain [Unknown]
  - Colectomy [Unknown]
  - Transitional cell cancer of the renal pelvis and ureter [Unknown]
  - Renal cancer [Unknown]
  - Bladder cancer [Unknown]
  - Nephrectomy [Unknown]
  - Ureterectomy [Unknown]
  - Haematuria [Recovered/Resolved]
  - Renal neoplasm [Unknown]
  - Bladder neoplasm [Unknown]
